FAERS Safety Report 14774289 (Version 3)
Quarter: 2020Q3

REPORT INFORMATION
  Report Type: Report from Study
  Country: CA (occurrence: CA)
  Receive Date: 20180418
  Receipt Date: 20200928
  Transmission Date: 20201102
  Serious: Yes (Other)
  Sender: FDA-Public Use
  Company Number: CA-ASCEND THERAPEUTICS-2045944

PATIENT
  Age: 70 Year
  Sex: Female

DRUGS (4)
  1. ESTROGEL [Suspect]
     Active Substance: ESTRADIOL
     Indication: MENOPAUSE
     Route: 062
     Dates: start: 201705
  2. PROMETRIUM [Suspect]
     Active Substance: PROGESTERONE
     Route: 048
     Dates: start: 201705
  3. PROMETRIUM [Suspect]
     Active Substance: PROGESTERONE
     Route: 048
     Dates: start: 201705
  4. ESTROGEL [Suspect]
     Active Substance: ESTRADIOL
     Route: 062

REACTIONS (7)
  - Malaise [Recovered/Resolved]
  - Back pain [Recovered/Resolved]
  - Off label use [Recovered/Resolved]
  - Intervertebral disc degeneration [Recovered/Resolved]
  - Neck pain [Recovered/Resolved]
  - Shoulder operation [Recovered/Resolved]
  - Osteoarthritis [Recovered/Resolved]
